FAERS Safety Report 8204595-1 (Version None)
Quarter: 2012Q1

REPORT INFORMATION
  Report Type: 
  Country: None (occurrence: None)
  Receive Date: 20120313
  Receipt Date: 20120308
  Transmission Date: 20120608
  Serious: Yes (Other)
  Sender: FDA-Public Use
  Company Number: US-PFIZER INC-2012063226

PATIENT
  Sex: Male
  Weight: 129 kg

DRUGS (4)
  1. LIPITOR [Suspect]
     Indication: BLOOD CHOLESTEROL INCREASED
     Dosage: 40 MG, DAILY
     Route: 048
  2. PLAVIX [Concomitant]
     Indication: ANTICOAGULANT THERAPY
     Dosage: 75 MG, DAILY
  3. TRIBENZOR [Concomitant]
     Indication: BLOOD PRESSURE ABNORMAL
     Dosage: 75 MG, DAILY
  4. WARFARIN SODIUM [Concomitant]
     Dosage: UNK

REACTIONS (2)
  - STENT PLACEMENT [None]
  - BLOOD CHOLESTEROL INCREASED [None]
